FAERS Safety Report 14292223 (Version 1)
Quarter: 2017Q4

REPORT INFORMATION
  Report Type: Report from Study
  Country: None (occurrence: US)
  Receive Date: 20171215
  Receipt Date: 20171215
  Transmission Date: 20180321
  Serious: Yes (Hospitalization, Other)
  Sender: FDA-Public Use
  Company Number: US-ABBVIE-17S-163-2191242-00

PATIENT
  Age: 25 Year
  Sex: Male

DRUGS (1)
  1. DEPAKOTE [Suspect]
     Active Substance: DIVALPROEX SODIUM
     Indication: PRODUCT USED FOR UNKNOWN INDICATION
     Route: 048

REACTIONS (5)
  - Cognitive disorder [Unknown]
  - Seizure [Unknown]
  - Staring [Unknown]
  - Hemiparesis [Unknown]
  - Seizure [Unknown]

NARRATIVE: CASE EVENT DATE: 201607
